FAERS Safety Report 6969256-5 (Version None)
Quarter: 2010Q3

REPORT INFORMATION
  Report Type: 
  Country: None (occurrence: None)
  Receive Date: 20100907
  Receipt Date: 20100824
  Transmission Date: 20110219
  Serious: Yes (Congenital Anomaly, Other)
  Sender: FDA-Public Use
  Company Number: US-ELI_LILLY_AND_COMPANY-US201008007212

PATIENT

DRUGS (1)
  1. PROZAC [Suspect]
     Route: 064

REACTIONS (4)
  - CONGENITAL AORTIC STENOSIS [None]
  - DOUBLE OUTLET RIGHT VENTRICLE [None]
  - DRUG EXPOSURE DURING PREGNANCY [None]
  - OBSTRUCTIVE AIRWAYS DISORDER [None]
